FAERS Safety Report 24899224 (Version 1)
Quarter: 2025Q1

REPORT INFORMATION
  Report Type: Spontaneous
  Country: JP (occurrence: JP)
  Receive Date: 20250129
  Receipt Date: 20250129
  Transmission Date: 20250408
  Serious: Yes (Other)
  Sender: RANBAXY
  Company Number: JP-SUN PHARMACEUTICAL INDUSTRIES LTD-2025R1-490943

PATIENT
  Age: 14 Month
  Sex: Male
  Weight: 2.5 kg

DRUGS (5)
  1. ALENDRONIC ACID [Suspect]
     Active Substance: ALENDRONIC ACID
     Indication: Osteoporosis
     Dosage: 5 MILLIGRAM, WEEKLY
     Route: 048
  2. ALENDRONIC ACID [Suspect]
     Active Substance: ALENDRONIC ACID
     Dosage: 7 MILLIGRAM, WEEKLY
     Route: 048
  3. ALENDRONIC ACID [Suspect]
     Active Substance: ALENDRONIC ACID
     Dosage: 8.75 MILLIGRAM, WEEKLY, AGE OF 4 MONTHS
     Route: 048
  4. ALENDRONIC ACID [Suspect]
     Active Substance: ALENDRONIC ACID
     Dosage: 10.5 MILLIGRAM, WEEKLY, AT THE 6 MONTHS
     Route: 048
  5. ALENDRONIC ACID [Suspect]
     Active Substance: ALENDRONIC ACID
     Dosage: 14 MILLIGRAM, WEEKLY, AT THE 1 YEARS
     Route: 048

REACTIONS (2)
  - Tooth development disorder [Unknown]
  - Neuropathic arthropathy [Unknown]
